FAERS Safety Report 17614514 (Version 5)
Quarter: 2021Q1

REPORT INFORMATION
  Report Type: Spontaneous
  Country: BR (occurrence: BR)
  Receive Date: 20200402
  Receipt Date: 20210128
  Transmission Date: 20210419
  Serious: Yes (Other)
  Sender: FDA-Public Use
  Company Number: BR-AMGEN-BRASP2013059769

PATIENT
  Age: 37 Year
  Sex: Female
  Weight: 80 kg

DRUGS (4)
  1. PREDNISONE. [Concomitant]
     Active Substance: PREDNISONE
     Indication: CONDITION AGGRAVATED
     Dosage: 20 MG, AS NEEDED
  2. ENBREL [Suspect]
     Active Substance: ETANERCEPT
     Indication: RHEUMATOID ARTHRITIS
     Dosage: 50 MG, WEEKLY
     Route: 058
     Dates: start: 201104
  3. ENBREL [Suspect]
     Active Substance: ETANERCEPT
     Dosage: UNK
     Route: 065
     Dates: end: 202001
  4. ENBREL [Suspect]
     Active Substance: ETANERCEPT
     Dosage: UNK
     Route: 065
     Dates: start: 202002

REACTIONS (13)
  - Nasal congestion [Not Recovered/Not Resolved]
  - Pyrexia [Unknown]
  - Arrhythmia [Unknown]
  - Sputum discoloured [Unknown]
  - Osteoarthritis [Unknown]
  - Dysphonia [Not Recovered/Not Resolved]
  - Arthralgia [Unknown]
  - Influenza [Not Recovered/Not Resolved]
  - Lacrimation increased [Unknown]
  - Decreased immune responsiveness [Unknown]
  - Osteoporosis [Unknown]
  - Cough [Unknown]
  - Pain [Unknown]

NARRATIVE: CASE EVENT DATE: 20130820
